FAERS Safety Report 8288445-3 (Version None)
Quarter: 2012Q2

REPORT INFORMATION
  Report Type: 
  Country: None (occurrence: None)
  Receive Date: 20120416
  Receipt Date: 20120405
  Transmission Date: 20120825
  Serious: Yes (Other)
  Sender: FDA-Public Use
  Company Number: US-ROCHE-1057198

PATIENT
  Sex: Female

DRUGS (1)
  1. RITUXAN [Suspect]
     Indication: RHEUMATOID ARTHRITIS
     Dates: start: 20111226

REACTIONS (4)
  - ORAL MUCOSAL EXFOLIATION [None]
  - THROAT IRRITATION [None]
  - BLOOD BLISTER [None]
  - EAR PRURITUS [None]
